FAERS Safety Report 23588330 (Version 1)
Quarter: 2024Q1

REPORT INFORMATION
  Report Type: Spontaneous
  Country: US (occurrence: US)
  Receive Date: 20240302
  Receipt Date: 20240302
  Transmission Date: 20240409
  Serious: Yes (Death, Other)
  Sender: FDA-Public Use
  Company Number: US-AMGEN-USASP2024038053

PATIENT

DRUGS (2)
  1. BEVACIZUMAB [Suspect]
     Active Substance: BEVACIZUMAB
     Indication: Hepatocellular carcinoma
     Dosage: UNK
     Route: 065
  2. ATEZOLIZUMAB [Suspect]
     Active Substance: ATEZOLIZUMAB
     Indication: Hepatocellular carcinoma
     Dosage: UNK
     Route: 065

REACTIONS (16)
  - Immune-mediated enterocolitis [Fatal]
  - Large intestine perforation [Fatal]
  - Pemphigoid [Unknown]
  - Immune-mediated hypothyroidism [Unknown]
  - Immune-mediated hyperthyroidism [Unknown]
  - Immune-mediated hepatitis [Unknown]
  - Immune-mediated vasculitis [Unknown]
  - Pruritus [Unknown]
  - Rash [Unknown]
  - Lichen planus [Unknown]
  - Vitiligo [Unknown]
  - Eczema [Unknown]
  - Drug effective for unapproved indication [Unknown]
  - Fatigue [Unknown]
  - Stomatitis [Unknown]
  - Off label use [Unknown]
